FAERS Safety Report 17557009 (Version 1)
Quarter: 2020Q1

REPORT INFORMATION
  Report Type: Spontaneous
  Country: JP (occurrence: JP)
  Receive Date: 20200318
  Receipt Date: 20200318
  Transmission Date: 20200409
  Serious: Yes (Hospitalization, Other)
  Sender: FDA-Public Use
  Company Number: JP-MYLANLABS-2020M1027852

PATIENT
  Age: 81 Year
  Sex: Male
  Weight: 68.3 kg

DRUGS (9)
  1. URIEF [Concomitant]
     Active Substance: SILODOSIN
     Indication: BENIGN PROSTATIC HYPERPLASIA
     Dosage: 4 MILLIGRAM, BID
     Route: 048
  2. WARFARIN [Concomitant]
     Active Substance: WARFARIN
     Indication: ATRIAL FIBRILLATION
     Dosage: 2 MILLIGRAM, QD
     Route: 048
     Dates: end: 20170413
  3. ALLOPURINOL. [Concomitant]
     Active Substance: ALLOPURINOL
     Indication: HYPERURICAEMIA
     Dosage: 100 MILLIGRAM, QD
     Route: 048
  4. PROSTAL                            /00093602/ [Concomitant]
     Active Substance: CHLORMADINONE ACETATE
     Indication: BENIGN PROSTATIC HYPERPLASIA
     Dosage: 25 MILLIGRAM, BID
     Route: 048
  5. LAC-B [Concomitant]
     Active Substance: BIFIDOBACTERIUM SPP.
     Indication: PRODUCT USED FOR UNKNOWN INDICATION
     Dosage: 1 DOSAGE FORM, TID
     Route: 048
  6. LANIRAPID [Concomitant]
     Active Substance: METILDIGOXIN
     Indication: ATRIAL FIBRILLATION
     Dosage: 0.1 MILLIGRAM, QD
     Route: 048
  7. DOCETAXEL. [Suspect]
     Active Substance: DOCETAXEL
     Dosage: 100.1 MILLIGRAM, QD
     Route: 042
     Dates: start: 20170316, end: 201703
  8. PREDNISOLONE. [Suspect]
     Active Substance: PREDNISOLONE
     Indication: PROSTATE CANCER
     Dosage: 5 MILLIGRAM, BID
     Route: 048
     Dates: end: 20170413
  9. DOCETAXEL. [Suspect]
     Active Substance: DOCETAXEL
     Indication: PROSTATE CANCER
     Dosage: 125.6 MILLIGRAM, QD
     Route: 041
     Dates: start: 20170216, end: 2017

REACTIONS (3)
  - Interstitial lung disease [Recovering/Resolving]
  - Hyponatraemia [Unknown]
  - Pancytopenia [Unknown]

NARRATIVE: CASE EVENT DATE: 201702
